FAERS Safety Report 10933676 (Version 1)
Quarter: 2015Q1

REPORT INFORMATION
  Report Type: Spontaneous
  Country: US (occurrence: US)
  Receive Date: 20150320
  Receipt Date: 20150320
  Transmission Date: 20150721
  Serious: Yes (Other)
  Sender: FDA-Public Use
  Company Number: US-JNJFOC-20150306215

PATIENT
  Age: 85 Year
  Sex: Male
  Weight: 72.58 kg

DRUGS (3)
  1. SIMPLY RIGHT (AN EYE VITAMIN) [Concomitant]
     Indication: EYE DISORDER
     Route: 065
  2. LISTERINE TOTAL CARE ANTICAVITY - FRESH MINT [Suspect]
     Active Substance: SODIUM FLUORIDE
     Indication: ENAMEL ANOMALY
     Dosage: 2 TEASPOONS
     Route: 048
  3. CENTRUM MULTIVITAMINS [Concomitant]
     Active Substance: VITAMINS
     Indication: ROUTINE HEALTH MAINTENANCE
     Dosage: YEARS
     Route: 065

REACTIONS (2)
  - Laryngitis [Recovered/Resolved]
  - Product closure removal difficult [Unknown]
